FAERS Safety Report 4300771-9 (Version None)
Quarter: 2004Q1

REPORT INFORMATION
  Report Type: 
  Country: None (occurrence: None)
  Receive Date: 20040217
  Receipt Date: 20040202
  Transmission Date: 20041129
  Serious: Yes (Death, Hospitalization, Other)
  Sender: FDA-Public Use
  Company Number: A107090

PATIENT
  Age: 31 Month
  Sex: Male

DRUGS (12)
  1. SILDENAFIL (SILFENAFIL) [Suspect]
     Indication: PULMONARY HYPERTENSION
     Dosage: 16 MG (QID), NASOGASTRIC TUBE
     Route: 045
     Dates: start: 20010313, end: 20010602
  2. SALBUTAMOL (SALBUTAMOL) [Concomitant]
  3. HEPARIN-FRACTION, SODIUM SALT (HEPARIN-FRACTION, SODIUM SALT) [Concomitant]
  4. FUROSEMIDE [Concomitant]
  5. OMEPRAZOLE [Concomitant]
  6. POTASSIUM CHLORIDE [Concomitant]
  7. DOMPERIDONE (DOMPERIDONE) [Concomitant]
  8. DIGOXIN [Concomitant]
  9. BUDESONIDE (BUDESONIDE) [Concomitant]
  10. SODIUM CHLORIDE 0.9% [Concomitant]
  11. NYSTATIN [Concomitant]
  12. SODIUM CHLORIDE 0.9% [Concomitant]

REACTIONS (10)
  - BRADYCARDIA [None]
  - BRONCHOPULMONARY DYSPLASIA [None]
  - CARDIAC PROCEDURE COMPLICATION [None]
  - GENERAL PHYSICAL HEALTH DETERIORATION [None]
  - HYPOTENSION [None]
  - MEDICAL DEVICE COMPLICATION [None]
  - PULMONARY ARTERIAL PRESSURE DECREASED [None]
  - PULMONARY EMBOLISM [None]
  - RASH [None]
  - RIGHT VENTRICULAR FAILURE [None]
